FAERS Safety Report 5634414-9 (Version None)
Quarter: 2008Q1

REPORT INFORMATION
  Report Type: 
  Country: None (occurrence: None)
  Receive Date: 20080222
  Receipt Date: 20080122
  Transmission Date: 20080703
  Serious: Yes (Hospitalization)
  Sender: FDA-Public Use
  Company Number: DE-BRISTOL-MYERS SQUIBB COMPANY-14060404

PATIENT
  Age: 69 Year
  Sex: Female

DRUGS (6)
  1. ENDOXAN [Suspect]
     Indication: B-CELL LYMPHOMA
     Route: 042
     Dates: start: 20070706, end: 20071023
  2. VINCRISTINE [Suspect]
     Indication: B-CELL LYMPHOMA
     Route: 042
     Dates: start: 20070706, end: 20071023
  3. INSULIN [Suspect]
     Indication: DIABETES MELLITUS
  4. GAMMAGARD LIQUID [Suspect]
     Indication: B-CELL LYMPHOMA
     Route: 042
     Dates: start: 20071018, end: 20071018
  5. RITUXIMAB [Concomitant]
     Indication: NON-HODGKIN'S LYMPHOMA
     Route: 042
     Dates: start: 20070705, end: 20071022
  6. ADRIAMYCIN PFS [Concomitant]
     Indication: NON-HODGKIN'S LYMPHOMA
     Route: 042
     Dates: start: 20070706, end: 20071023

REACTIONS (1)
  - HYPOGLYCAEMIA [None]
